FAERS Safety Report 5786119-1 (Version None)
Quarter: 2008Q2

REPORT INFORMATION
  Report Type: 
  Country: None (occurrence: None)
  Receive Date: 20080624
  Receipt Date: 20080619
  Transmission Date: 20081010
  Serious: Yes (Hospitalization, Other)
  Sender: FDA-Public Use
  Company Number: SE-ABBOTT-08P-150-0458452-00

PATIENT
  Age: 43 Year
  Sex: Female

DRUGS (4)
  1. REDUCTIL [Suspect]
     Indication: OBESITY
     Route: 048
     Dates: start: 20070601, end: 20071101
  2. BRICANYL [Concomitant]
     Indication: DRUG USE FOR UNKNOWN INDICATION
     Route: 048
  3. SERTRALINE [Concomitant]
     Indication: DRUG USE FOR UNKNOWN INDICATION
     Route: 048
  4. SYMBICORT FORTE TURBUHALER [Concomitant]
     Indication: DRUG USE FOR UNKNOWN INDICATION
     Route: 048

REACTIONS (8)
  - BUNDLE BRANCH BLOCK LEFT [None]
  - CARDIAC FAILURE [None]
  - CHEST DISCOMFORT [None]
  - CONGESTIVE CARDIOMYOPATHY [None]
  - DISCOMFORT [None]
  - DRUG TOXICITY [None]
  - DYSPNOEA [None]
  - PULMONARY HYPERTENSION [None]
